FAERS Safety Report 16173673 (Version 2)
Quarter: 2019Q2

REPORT INFORMATION
  Report Type: Report from Study
  Country: None (occurrence: US)
  Receive Date: 20190409
  Receipt Date: 20190412
  Transmission Date: 20190711
  Serious: Yes (Other)
  Sender: FDA-Public Use
  Company Number: US-ABBVIE-19S-163-2725122-00

PATIENT
  Age: 67 Year
  Sex: Male
  Weight: 74.46 kg

DRUGS (8)
  1. PRAVACHOL [Concomitant]
     Active Substance: PRAVASTATIN SODIUM
     Indication: BLOOD CHOLESTEROL
  2. FLOMAX [Concomitant]
     Active Substance: TAMSULOSIN HYDROCHLORIDE
     Indication: PROSTATIC DISORDER
  3. MOBIC [Concomitant]
     Active Substance: MELOXICAM
     Indication: ARTHRALGIA
  4. IRON [Concomitant]
     Active Substance: IRON
     Indication: ANAEMIA
  5. ZENPEP [Concomitant]
     Active Substance: PANCRELIPASE AMYLASE\PANCRELIPASE LIPASE\PANCRELIPASE PROTEASE
     Indication: PANCREATITIS CHRONIC
  6. ASPIRIN. [Concomitant]
     Active Substance: ASPIRIN
     Indication: PROPHYLAXIS
  7. PEPCID [Concomitant]
     Active Substance: FAMOTIDINE
     Indication: GASTROOESOPHAGEAL REFLUX DISEASE
  8. CREON [Suspect]
     Active Substance: PANCRELIPASE AMYLASE\PANCRELIPASE LIPASE\PANCRELIPASE PROTEASE
     Indication: PANCREATITIS CHRONIC
     Dosage: 2 CAPSULES WITH MEALS 3 TIMES A DAY AND 1-2 CAPSULES WITH SNACK
     Route: 048
     Dates: start: 20140917, end: 20181218

REACTIONS (8)
  - Abnormal faeces [Unknown]
  - Large intestine polyp [Recovered/Resolved]
  - Flatulence [Unknown]
  - Hiatus hernia [Not Recovered/Not Resolved]
  - Change of bowel habit [Unknown]
  - Diverticulum oesophageal [Unknown]
  - Change of bowel habit [Recovering/Resolving]
  - Gastrointestinal mucosa hyperaemia [Not Recovered/Not Resolved]

NARRATIVE: CASE EVENT DATE: 20170718
